FAERS Safety Report 5771411-7 (Version None)
Quarter: 2008Q2

REPORT INFORMATION
  Report Type: 
  Country: None (occurrence: None)
  Receive Date: 20080610
  Receipt Date: 20080527
  Transmission Date: 20081010
  Serious: Yes (Death, Hospitalization)
  Sender: FDA-Public Use
  Company Number: 2008AL005919

PATIENT
  Age: 79 Year
  Sex: Female
  Weight: 102.0593 kg

DRUGS (2)
  1. DIGOXIN [Suspect]
     Indication: ARRHYTHMIA
     Dosage: 0.125 MG QD PO
     Route: 048
  2. LASIX [Concomitant]

REACTIONS (1)
  - UNRESPONSIVE TO STIMULI [None]
